FAERS Safety Report 9562510 (Version 2)
Quarter: 2013Q3

REPORT INFORMATION
  Report Type: Report from Study
  Country: US (occurrence: US)
  Receive Date: 20130927
  Receipt Date: 20130927
  Transmission Date: 20140515
  Serious: Yes (Other)
  Sender: FDA-Public Use
  Company Number: US-ROCHE-GNE323766

PATIENT
  Sex: 0

DRUGS (2)
  1. RANIBIZUMAB [Suspect]
     Indication: AGE-RELATED MACULAR DEGENERATION
     Dosage: 2.0 MG MONTHLY FOR 12 MONTHS OR 2.0 MG MONTHLY FOR 4 MONTHS (MONTHS 0, 1, 2, AND 3) FOLLOWED BY PRN
     Route: 050
  2. RANIBIZUMAB [Suspect]
     Indication: DETACHMENT OF RETINAL PIGMENT EPITHELIUM

REACTIONS (1)
  - Retinal pigment epithelial tear [Unknown]
